FAERS Safety Report 4932694-6 (Version None)
Quarter: 2006Q1

REPORT INFORMATION
  Report Type: 
  Country: None (occurrence: None)
  Receive Date: 20060301
  Receipt Date: 20060220
  Transmission Date: 20060701
  Serious: Yes (Death)
  Sender: FDA-Public Use
  Company Number: MK200602-0222-1

PATIENT
  Age: 37 Year
  Sex: Male

DRUGS (6)
  1. METHADONE HCL [Suspect]
     Dates: end: 20050710
  2. BIVALIRUDIN [Suspect]
     Dosage: SEE IMAGE
     Dates: start: 20050617
  3. EFFEXOR [Suspect]
  4. DIAZEPAM [Suspect]
  5. SALBUTAMOL [Concomitant]
  6. ASPIRIN [Concomitant]

REACTIONS (8)
  - APNOEA [None]
  - ARTERIOSCLEROSIS CORONARY ARTERY [None]
  - CARDIAC ARREST [None]
  - DRUG TOXICITY [None]
  - LOSS OF CONSCIOUSNESS [None]
  - NAUSEA [None]
  - PULMONARY GRANULOMA [None]
  - VOMITING [None]
